FAERS Safety Report 4667504-8 (Version None)
Quarter: 2005Q2

REPORT INFORMATION
  Report Type: 
  Country: None (occurrence: None)
  Receive Date: 20050519
  Receipt Date: 20050519
  Transmission Date: 20051028
  Serious: No
  Sender: FDA-Public Use
  Company Number: None

PATIENT
  Age: 63 Year
  Sex: Female

DRUGS (2)
  1. VISIPAQUE [Suspect]
     Indication: ANGINA UNSTABLE
     Dosage: INTRAVENOUS
     Route: 042
     Dates: start: 20050517, end: 20050517
  2. TICLID [Suspect]
     Dosage: 250MG   TWICE DAILY   ORAL
     Route: 048

REACTIONS (2)
  - CONTRAST MEDIA REACTION [None]
  - RASH PRURITIC [None]
